FAERS Safety Report 24896010 (Version 1)
Quarter: 2025Q1

REPORT INFORMATION
  Report Type: Spontaneous
  Country: US (occurrence: US)
  Receive Date: 20250128
  Receipt Date: 20250128
  Transmission Date: 20250409
  Serious: Yes (Other)
  Sender: SANDOZ
  Company Number: US-IMP-2025000045

PATIENT
  Age: 76 Year
  Sex: Female

DRUGS (1)
  1. MAXITROL [Suspect]
     Active Substance: DEXAMETHASONE\NEOMYCIN SULFATE\POLYMYXIN B SULFATE
     Indication: Pyogenic granuloma
     Dosage: 1 DRP, Q6H (1/12 MILLILITRE)
     Route: 047
     Dates: start: 20240205, end: 20240205

REACTIONS (3)
  - Tinnitus [Recovered/Resolved]
  - Dizziness [Recovered/Resolved]
  - Sleep disorder [Recovered/Resolved]

NARRATIVE: CASE EVENT DATE: 20240205
